FAERS Safety Report 10778298 (Version 2)
Quarter: 2015Q3

REPORT INFORMATION
  Report Type: Spontaneous
  Country: US (occurrence: US)
  Receive Date: 20150209
  Receipt Date: 20150805
  Transmission Date: 20151125
  Serious: No
  Sender: FDA-Public Use
  Company Number: US-AMGEN-USASP2014084543

PATIENT
  Age: 31 Year
  Sex: Female

DRUGS (1)
  1. NPLATE [Suspect]
     Active Substance: ROMIPLOSTIM
     Indication: IMMUNE THROMBOCYTOPENIC PURPURA
     Dosage: 0.3 MUG/KG (20 MCG),DAILY
     Route: 065
     Dates: start: 20140107

REACTIONS (2)
  - Drug hypersensitivity [Unknown]
  - Exposure during pregnancy [Unknown]
